FAERS Safety Report 11539072 (Version 1)
Quarter: 2015Q3

REPORT INFORMATION
  Report Type: Spontaneous
  Country: US (occurrence: None)
  Receive Date: 20150922
  Receipt Date: 20150922
  Transmission Date: 20151125
  Serious: No
  Sender: FDA-Public Use
  Company Number: None

PATIENT
  Age: 24 Year
  Sex: Female
  Weight: 66.68 kg

DRUGS (9)
  1. MIRENA [Suspect]
     Active Substance: LEVONORGESTREL
  2. CHAMOMILE [Concomitant]
     Active Substance: CHAMOMILE
  3. L CARTINITINE [Concomitant]
  4. MULTIVITAMIN [Concomitant]
     Active Substance: VITAMINS
  5. VITAMIN B12 [Concomitant]
     Active Substance: CYANOCOBALAMIN
  6. TEA [Concomitant]
     Active Substance: TEA LEAF
  7. COFFEE [Concomitant]
     Active Substance: ARABICA COFFEE BEAN\COFFEE BEAN
  8. OMEGA 3 [Concomitant]
     Active Substance: OMEGA-3 FATTY ACIDS
  9. BIOTIN [Concomitant]
     Active Substance: BIOTIN

REACTIONS (9)
  - Pelvic pain [None]
  - Urinary tract infection [None]
  - Fluid retention [None]
  - Depression [None]
  - Alopecia [None]
  - Insomnia [None]
  - Weight increased [None]
  - Back pain [None]
  - Mood swings [None]

NARRATIVE: CASE EVENT DATE: 20150921
